FAERS Safety Report 9038729 (Version 2)
Quarter: 2013Q2

REPORT INFORMATION
  Report Type: Report from Study
  Country: US (occurrence: US)
  Receive Date: 20130129
  Receipt Date: 20130501
  Transmission Date: 20140414
  Serious: Yes (Hospitalization)
  Sender: FDA-Public Use
  Company Number: US-AMGEN-USACT2013001927

PATIENT
  Age: 50 Year
  Sex: Male
  Weight: 73.73 kg

DRUGS (14)
  1. DARBEPOETIN ALFA [Suspect]
     Indication: NEPHROGENIC ANAEMIA
     Dosage: UNK UNK, Q4WK
     Route: 058
     Dates: start: 20120815, end: 20130103
  2. MINOXIDIL [Concomitant]
     Dosage: 2 MG, BID
     Route: 048
     Dates: start: 20111015
  3. COLACE [Concomitant]
     Dosage: 100 MG, BID
     Route: 048
     Dates: start: 20111015
  4. SIMVASTATIN [Concomitant]
     Dosage: 20 MG, UNK
     Dates: start: 20121222
  5. CRESTOR [Concomitant]
     Dosage: UNK
     Dates: start: 20111015, end: 20121221
  6. ISOSORBIDE [Concomitant]
     Dosage: 20 MG, BID
     Route: 048
     Dates: start: 20101215
  7. LANTUS [Concomitant]
     Dosage: 5 UNIT, UNK
     Route: 058
     Dates: start: 20111215
  8. LASIX [Concomitant]
     Dosage: 40 MG, BID
     Route: 048
     Dates: start: 20111015
  9. LISINOPRIL [Concomitant]
     Dosage: 20 MG, UNK
     Route: 048
     Dates: start: 20111015
  10. POTASSIUM CHLORIDE [Concomitant]
     Dosage: 20 MEQ, UNK
     Route: 048
     Dates: start: 20111015
  11. PROCARDIA [Concomitant]
     Dosage: 90 MG, UNK
     Route: 048
     Dates: start: 20111015
  12. VITAMIN D [Concomitant]
     Dosage: 50000 UNIT, QWK
     Dates: start: 20111015
  13. PEPCID [Concomitant]
     Dosage: UNK
  14. IRON [Concomitant]
     Dosage: UNK

REACTIONS (1)
  - Eczema [Not Recovered/Not Resolved]
